FAERS Safety Report 13589776 (Version 1)
Quarter: 2017Q2

REPORT INFORMATION
  Report Type: Spontaneous
  Country: IT (occurrence: IT)
  Receive Date: 20170530
  Receipt Date: 20170530
  Transmission Date: 20170830
  Serious: Yes (Other)
  Sender: FDA-Public Use
  Company Number: PHHY2017IT076973

PATIENT
  Age: 64 Year
  Sex: Female

DRUGS (2)
  1. IMATINIB [Suspect]
     Active Substance: IMATINIB
     Dosage: 800 MG, UNK
     Route: 065
     Dates: start: 201404
  2. IMATINIB [Suspect]
     Active Substance: IMATINIB
     Indication: PRODUCT USED FOR UNKNOWN INDICATION
     Dosage: 400 MG, UNK
     Route: 065
     Dates: start: 200406

REACTIONS (9)
  - Neutropenia [Unknown]
  - Dyspepsia [Unknown]
  - Nausea [Unknown]
  - Oedema [Unknown]
  - Disease progression [Unknown]
  - Diarrhoea [Unknown]
  - Anaemia [Unknown]
  - Myalgia [Unknown]
  - Vomiting [Unknown]

NARRATIVE: CASE EVENT DATE: 201403
